FAERS Safety Report 16129369 (Version 1)
Quarter: 2019Q1

REPORT INFORMATION
  Report Type: Spontaneous
  Country: US (occurrence: US)
  Receive Date: 20190328
  Receipt Date: 20190328
  Transmission Date: 20190418
  Serious: Yes (Other)
  Sender: FDA-Public Use
  Company Number: US-NAPPMUNDI-USA-2019-0146632

PATIENT
  Age: 63 Year
  Sex: Female

DRUGS (2)
  1. BUTRANS [Suspect]
     Active Substance: BUPRENORPHINE
     Indication: PAIN
     Dosage: 5 MCG/HR, UNK
     Route: 062
  2. VICOPROFEN [Concomitant]
     Active Substance: HYDROCODONE BITARTRATE\IBUPROFEN
     Indication: PAIN
     Dosage: 7.5/200MG 2-3 TABLETS, DAILY
     Route: 048

REACTIONS (7)
  - Anal fistula excision [Not Recovered/Not Resolved]
  - Ovarian cyst [Unknown]
  - Oophorectomy [Unknown]
  - Post procedural infection [Unknown]
  - Spinal operation [Unknown]
  - Inappropriate schedule of product administration [Unknown]
  - Drug effect decreased [Unknown]

NARRATIVE: CASE EVENT DATE: 201805
